FAERS Safety Report 18968652 (Version 1)
Quarter: 2021Q1

REPORT INFORMATION
  Report Type: Spontaneous
  Country: US (occurrence: US)
  Receive Date: 20210304
  Receipt Date: 20210304
  Transmission Date: 20210420
  Serious: Yes (Hospitalization)
  Sender: FDA-Public Use
  Company Number: US-SUN PHARMACEUTICAL INDUSTRIES LTD-2021R1-284030

PATIENT
  Age: 68 Year
  Sex: Female

DRUGS (4)
  1. FLUOXETINE [Suspect]
     Active Substance: FLUOXETINE HYDROCHLORIDE
     Indication: DEPRESSION
     Dosage: 80 MILLIGRAM, DAILY
     Route: 065
  2. ZICONOTIDE [Interacting]
     Active Substance: ZICONOTIDE
     Dosage: INFUSION RATE WAS DECREASED TO THE MINIMUM
     Route: 065
  3. ZICONOTIDE [Interacting]
     Active Substance: ZICONOTIDE
     Dosage: INCREASE OF 1.2MCG/DAY OVER A TWO WEEK PERIOD WITH A MAX DOSE OF 19.2MCG/DAY
     Route: 065
  4. ZICONOTIDE [Interacting]
     Active Substance: ZICONOTIDE
     Indication: BACK PAIN
     Dosage: 2.4MCG/DAY
     Route: 065

REACTIONS (5)
  - Toxicity to various agents [Recovered/Resolved]
  - Asthenia [Recovered/Resolved]
  - Potentiating drug interaction [Recovered/Resolved]
  - Nystagmus [Recovered/Resolved]
  - Confusional state [Recovered/Resolved]
